FAERS Safety Report 9324436 (Version 1)
Quarter: 2013Q2

REPORT INFORMATION
  Report Type: Spontaneous
  Country: US (occurrence: None)
  Receive Date: 20130531
  Receipt Date: 20130531
  Transmission Date: 20140414
  Serious: Yes (Death)
  Sender: FDA-Public Use
  Company Number: None

PATIENT
  Age: 67 Year
  Sex: Male
  Weight: 59.42 kg

DRUGS (5)
  1. EXJADE 500MG NOVARTIS [Suspect]
     Indication: MYELODYSPLASTIC SYNDROME
     Dosage: 500MG DAILY BY MOUTH
     Route: 048
     Dates: start: 20120330, end: 20130522
  2. REVLIMID [Concomitant]
  3. VICODIN [Concomitant]
  4. LORATADINE [Concomitant]
  5. ADVIL [Concomitant]

REACTIONS (1)
  - Death [None]
